FAERS Safety Report 8951116 (Version 2)
Quarter: 2012Q4

REPORT INFORMATION
  Report Type: Spontaneous
  Country: US (occurrence: None)
  Receive Date: 20121130
  Receipt Date: 20121205
  Transmission Date: 20130627
  Serious: Yes (Death, Hospitalization, Other)
  Sender: FDA-Public Use
  Company Number: AMAG201203142

PATIENT
  Age: 56 Year
  Sex: Female

DRUGS (1)
  1. FERAHEME [Suspect]
     Dosage: , single, push
     Route: 042
     Dates: start: 20121120, end: 20121120

REACTIONS (8)
  - Cardiac arrest [None]
  - Loss of consciousness [None]
  - Unresponsive to stimuli [None]
  - Status epilepticus [None]
  - Wheezing [None]
  - Anaphylactic shock [None]
  - Malaise [None]
  - Anxiety [None]
